FAERS Safety Report 8115364-5 (Version None)
Quarter: 2012Q1

REPORT INFORMATION
  Report Type: 
  Country: None (occurrence: None)
  Receive Date: 20120206
  Receipt Date: 20120206
  Transmission Date: 20120608
  Serious: No
  Sender: FDA-Public Use
  Company Number: None

PATIENT
  Age: 64 Year
  Sex: Female
  Weight: 54.431 kg

DRUGS (1)
  1. CYMBALTA [Suspect]
     Indication: ERYTHROMELALGIA
     Dosage: 30 MG.
     Route: 048
     Dates: start: 20080728, end: 20120203

REACTIONS (1)
  - ALOPECIA [None]
